FAERS Safety Report 12690180 (Version 1)
Quarter: 2016Q3

REPORT INFORMATION
  Report Type: Spontaneous
  Country: US (occurrence: US)
  Receive Date: 20160826
  Receipt Date: 20160826
  Transmission Date: 20161109
  Serious: Yes (Life-Threatening, Other)
  Sender: FDA-Public Use
  Company Number: US-DEPOMED, INC.-US-2016DEP011817

PATIENT
  Age: 5 Day
  Sex: Female
  Weight: 3.34 kg

DRUGS (1)
  1. FENTANYL. [Suspect]
     Active Substance: FENTANYL
     Indication: ANALGESIC THERAPY
     Dosage: 9 ?G, UNK (3 BOLUSES, 3 MCG EACH)

REACTIONS (3)
  - Respiratory failure [Recovered/Resolved]
  - Muscle rigidity [Recovered/Resolved]
  - Cyanosis [Recovered/Resolved]
